FAERS Safety Report 7009774-7 (Version None)
Quarter: 2010Q3

REPORT INFORMATION
  Report Type: 
  Country: None (occurrence: None)
  Receive Date: 20100903
  Receipt Date: 20090709
  Transmission Date: 20110219
  Serious: No
  Sender: FDA-Public Use
  Company Number: 2009-00386

PATIENT
  Age: 59 Year
  Sex: Male
  Weight: 72.5755 kg

DRUGS (1)
  1. ZICAM COLD REMEDY GEL SWABS [Suspect]
     Dosage: Q 4-6 HRS X 1 MONTH
     Dates: start: 20090201, end: 20090301

REACTIONS (1)
  - ANOSMIA [None]
